FAERS Safety Report 24667298 (Version 4)
Quarter: 2025Q3

REPORT INFORMATION
  Report Type: Spontaneous
  Country: US (occurrence: US)
  Receive Date: 20241126
  Receipt Date: 20250716
  Transmission Date: 20251021
  Serious: Yes (Other)
  Sender: APELLIS PHARMACEUTICALS
  Company Number: US-APELLIS-2024-APL-0000915

PATIENT
  Weight: 57.153 kg

DRUGS (12)
  1. SYFOVRE [Suspect]
     Active Substance: PEGCETACOPLAN
     Indication: Dry age-related macular degeneration
     Route: 031
  2. SYFOVRE [Suspect]
     Active Substance: PEGCETACOPLAN
     Indication: Dry age-related macular degeneration
     Route: 031
  3. SYFOVRE [Suspect]
     Active Substance: PEGCETACOPLAN
     Indication: Dry age-related macular degeneration
     Route: 031
  4. SYFOVRE [Suspect]
     Active Substance: PEGCETACOPLAN
     Indication: Dry age-related macular degeneration
     Route: 031
  5. TYLENOL [Concomitant]
     Active Substance: ACETAMINOPHEN
     Indication: Product used for unknown indication
  6. VITAMINS [Concomitant]
     Active Substance: VITAMINS
     Indication: Product used for unknown indication
  7. VITAMIN C [Concomitant]
     Active Substance: ASCORBIC ACID
     Indication: Product used for unknown indication
  8. TEMAZEPAM [Concomitant]
     Active Substance: TEMAZEPAM
     Indication: Product used for unknown indication
  9. PROPRANOLOL [Concomitant]
     Active Substance: PROPRANOLOL HYDROCHLORIDE
     Indication: Product used for unknown indication
  10. CITALOPRAM [Concomitant]
     Active Substance: CITALOPRAM
     Indication: Product used for unknown indication
  11. PROTONIX [Concomitant]
     Active Substance: PANTOPRAZOLE SODIUM
     Indication: Product used for unknown indication
  12. LEVOTHYROXINE SODIUM [Concomitant]
     Active Substance: LEVOTHYROXINE SODIUM
     Indication: Product used for unknown indication

REACTIONS (4)
  - Visual impairment [Unknown]
  - Drug ineffective [Recovered/Resolved]
  - Intentional dose omission [Unknown]
  - Therapeutic product effect delayed [Recovered/Resolved]
